FAERS Safety Report 10098094 (Version 1)
Quarter: 2014Q2

REPORT INFORMATION
  Report Type: Spontaneous
  Country: GB (occurrence: GB)
  Receive Date: 20140423
  Receipt Date: 20140423
  Transmission Date: 20141212
  Serious: Yes (Hospitalization)
  Sender: FDA-Public Use
  Company Number: GB-ASTRAZENECA-2014SE26132

PATIENT
  Age: 76 Year
  Sex: Male
  Weight: 105.8 kg

DRUGS (3)
  1. OMEPRAZOLE [Suspect]
     Indication: DUODENITIS
     Route: 048
     Dates: start: 20071127, end: 20130117
  2. PLACEBO [Suspect]
     Indication: CARDIOVASCULAR DISORDER
     Route: 048
     Dates: start: 20081111, end: 20111222
  3. RAMIPRIL [Concomitant]
     Indication: ESSENTIAL HYPERTENSION
     Dates: start: 20130117, end: 20130117

REACTIONS (3)
  - Blood calcium decreased [Recovered/Resolved]
  - Blood magnesium decreased [Recovered/Resolved]
  - Influenza like illness [Unknown]
